FAERS Safety Report 7513176-4 (Version None)
Quarter: 2011Q2

REPORT INFORMATION
  Report Type: 
  Country: None (occurrence: None)
  Receive Date: 20110531
  Receipt Date: 20110516
  Transmission Date: 20111010
  Serious: Yes (Hospitalization)
  Sender: FDA-Public Use
  Company Number: JP-MERCK-1105USA02941

PATIENT
  Age: 80 Year
  Sex: Male

DRUGS (7)
  1. PEPCID [Concomitant]
     Dosage: DOSAGE IS UNCERTAIN DURING A DAY
     Route: 048
  2. MUCOSTA [Concomitant]
     Dosage: DOSAGE IS UNCERTAIN DURING A DAY
     Route: 048
  3. URIEF [Concomitant]
     Dosage: DOSAGE IS UNCERTAIN DURING A DAY
     Route: 048
  4. JANUVIA [Suspect]
     Indication: DIABETES MELLITUS
     Route: 048
     Dates: end: 20110222
  5. VESICARE [Concomitant]
     Dosage: DOSAGE IS UNCERTAIN DURING A DAY
     Route: 048
  6. JANUVIA [Suspect]
     Route: 048
     Dates: start: 20110101, end: 20110101
  7. COZAAR [Concomitant]
     Dosage: DOSAGE IS UNCERTAIN DURING A DAY
     Route: 048

REACTIONS (3)
  - FRACTURE [None]
  - PANCREATITIS ACUTE [None]
  - FALL [None]
